FAERS Safety Report 10144490 (Version 1)
Quarter: 2014Q2

REPORT INFORMATION
  Report Type: Spontaneous
  Country: DE (occurrence: DE)
  Receive Date: 20140430
  Receipt Date: 20140430
  Transmission Date: 20141212
  Serious: Yes (Life-Threatening, Hospitalization, Other)
  Sender: FDA-Public Use
  Company Number: DE-ELI_LILLY_AND_COMPANY-DE201404003375

PATIENT
  Age: 62 Year
  Sex: Female

DRUGS (5)
  1. OLANZAPINE [Suspect]
     Indication: BIPOLAR DISORDER
     Dosage: 40 MG, UNKNOWN
     Route: 065
  2. AMISULPRIDE [Suspect]
     Indication: BIPOLAR DISORDER
     Dosage: 1600 MG, UNKNOWN
     Route: 065
  3. BIPERIDEN [Concomitant]
     Indication: BIPOLAR DISORDER
     Dosage: 4 MG, UNKNOWN
     Route: 065
  4. BENPERIDOL [Suspect]
     Indication: BIPOLAR DISORDER
     Dosage: 68 MG, UNKNOWN
     Route: 065
  5. LITHIUM CARBONATE [Concomitant]
     Indication: BIPOLAR DISORDER
     Dosage: 675 MG, UNKNOWN
     Route: 065

REACTIONS (8)
  - Stress cardiomyopathy [Recovered/Resolved]
  - Torsade de pointes [Recovered/Resolved]
  - Ventricular tachycardia [Recovered/Resolved]
  - Ventricular fibrillation [Recovered/Resolved]
  - Cholelithiasis [Unknown]
  - Gallbladder injury [Recovered/Resolved]
  - Ventricular tachycardia [Recovered/Resolved]
  - Ventricular fibrillation [Recovered/Resolved]
